FAERS Safety Report 15081857 (Version 1)
Quarter: 2018Q2

REPORT INFORMATION
  Report Type: Spontaneous
  Country: IT (occurrence: IT)
  Receive Date: 20180628
  Receipt Date: 20180628
  Transmission Date: 20180711
  Serious: Yes (Life-Threatening, Hospitalization, Other)
  Sender: FDA-Public Use
  Company Number: IT-LUPIN PHARMACEUTICALS INC.-2018-04604

PATIENT
  Age: 68 Year
  Sex: Male

DRUGS (3)
  1. METFORMIN [Suspect]
     Active Substance: METFORMIN HYDROCHLORIDE
     Dosage: 200 TABLETS
     Route: 065
  2. METFORMIN [Suspect]
     Active Substance: METFORMIN HYDROCHLORIDE
     Indication: DIABETES MELLITUS
     Dosage: UNK
     Route: 065
  3. ENALAPRIL [Concomitant]
     Active Substance: ENALAPRIL
     Indication: HYPERTENSION
     Dosage: UNK
     Route: 065

REACTIONS (15)
  - Tachycardia [Unknown]
  - Lethargy [Unknown]
  - Hypoglycaemia [Unknown]
  - Intentional overdose [Unknown]
  - Tachypnoea [Unknown]
  - Toxicity to various agents [Unknown]
  - Abdominal pain [Unknown]
  - Time perception altered [Unknown]
  - Lactic acidosis [Unknown]
  - Suicide attempt [Unknown]
  - Loss of consciousness [Unknown]
  - Hypothermia [Unknown]
  - Slow speech [Unknown]
  - Nausea [Unknown]
  - Coma [Unknown]
